FAERS Safety Report 25967854 (Version 1)
Quarter: 2025Q4

REPORT INFORMATION
  Report Type: Spontaneous
  Country: US (occurrence: US)
  Receive Date: 20251028
  Receipt Date: 20251028
  Transmission Date: 20260117
  Serious: No
  Sender: SUNOVION
  Company Number: US-SMPA-2025SPA012976

PATIENT
  Sex: Male

DRUGS (1)
  1. ORGOVYX [Suspect]
     Active Substance: RELUGOLIX
     Indication: Product used for unknown indication
     Dosage: UNK
     Route: 048

REACTIONS (4)
  - Testicular pain [Unknown]
  - Loss of libido [Unknown]
  - Hot flush [Unknown]
  - Insomnia [Recovering/Resolving]
